FAERS Safety Report 5806918-7 (Version None)
Quarter: 2008Q3

REPORT INFORMATION
  Report Type: 
  Country: None (occurrence: None)
  Receive Date: 20080711
  Receipt Date: 20080701
  Transmission Date: 20090109
  Serious: Yes (Hospitalization, Other)
  Sender: FDA-Public Use
  Company Number: US-ROCHE-573388

PATIENT
  Age: 63 Year
  Sex: Female

DRUGS (1)
  1. VALIUM [Suspect]
     Indication: BIPOLAR DISORDER
     Dosage: DOSE: AS NEEDED (100 DOSE FORM A MONTH). OTHER INDICATION: MUSCLE RELAXANT
     Route: 065
     Dates: start: 19630601

REACTIONS (6)
  - FIBROMYALGIA [None]
  - HYPOTHYROIDISM [None]
  - INJURY [None]
  - INTERVERTEBRAL DISC PROTRUSION [None]
  - RAYNAUD'S PHENOMENON [None]
  - SLEEP DISORDER [None]
